FAERS Safety Report 8255631-8 (Version None)
Quarter: 2012Q2

REPORT INFORMATION
  Report Type: 
  Country: None (occurrence: None)
  Receive Date: 20120403
  Receipt Date: 20120403
  Transmission Date: 20120825
  Serious: Yes (Hospitalization)
  Sender: FDA-Public Use
  Company Number: None

PATIENT
  Age: 85 Year
  Sex: Male
  Weight: 66 kg

DRUGS (14)
  1. CHOLECALCIFEROL [Concomitant]
  2. LOVASTATIN [Concomitant]
  3. HYDROXYCHLOROQUINE SULFATE [Concomitant]
  4. DABIGATRAN [Suspect]
     Indication: ATRIAL FIBRILLATION
     Dosage: 150 MG
     Route: 048
     Dates: start: 20111101, end: 20120325
  5. TAMSULOSIN HCL [Concomitant]
  6. DUTASTERIDE [Concomitant]
  7. DARBEPOETIN [Concomitant]
  8. OXYCODONE HCL [Concomitant]
  9. PREDNISONE TAB [Concomitant]
  10. DILTIAZEM HCL [Concomitant]
  11. RISEDRONATE SODIUM [Concomitant]
  12. ASPIRIN [Concomitant]
  13. ASPIRIN AND DIPYRIDAMOLE [Concomitant]
  14. FERROUS SULFATE TAB [Concomitant]

REACTIONS (4)
  - PANCYTOPENIA [None]
  - CHEST PAIN [None]
  - FATIGUE [None]
  - GASTROINTESTINAL HAEMORRHAGE [None]
